FAERS Safety Report 22532749 (Version 1)
Quarter: 2023Q2

REPORT INFORMATION
  Report Type: Spontaneous
  Country: GB (occurrence: GB)
  Receive Date: 20230607
  Receipt Date: 20230607
  Transmission Date: 20230722
  Serious: Yes (Hospitalization)
  Sender: FDA-Public Use
  Company Number: GB-002147023-NVSC2021GB204902

PATIENT
  Sex: Female

DRUGS (4)
  1. TACROLIMUS [Suspect]
     Active Substance: TACROLIMUS
     Indication: Product used for unknown indication
     Dosage: 1 DF, BID (0.5 MG)
     Route: 065
  2. TACROLIMUS [Suspect]
     Active Substance: TACROLIMUS
     Dosage: 1 DF, BID  (1 MG)
     Route: 065
  3. VALGANCICLOVIR [Suspect]
     Active Substance: VALGANCICLOVIR
     Indication: Product used for unknown indication
     Dosage: 1 DF, QD
     Route: 065
  4. PREDNISOLONE [Suspect]
     Active Substance: PREDNISOLONE
     Indication: Product used for unknown indication
     Dosage: 1 DF, QD
     Route: 065

REACTIONS (1)
  - Lower respiratory tract infection [Unknown]
